FAERS Safety Report 16636432 (Version 1)
Quarter: 2019Q3

REPORT INFORMATION
  Report Type: Spontaneous
  Country: US (occurrence: US)
  Receive Date: 20190726
  Receipt Date: 20190726
  Transmission Date: 20191004
  Serious: Yes (Disabling)
  Sender: FDA-Public Use
  Company Number: None

PATIENT
  Age: 44 Year
  Sex: Male
  Weight: 114.3 kg

DRUGS (4)
  1. NABUMATONE [Concomitant]
     Active Substance: NABUMETONE
  2. VIT D [Concomitant]
     Active Substance: VITAMIN D NOS
  3. VENAFLEXIN [Concomitant]
  4. HUMIRA [Suspect]
     Active Substance: ADALIMUMAB
     Indication: PSORIASIS
     Dosage: ?          OTHER FREQUENCY:Q 2 WEEKS;?
     Route: 030
     Dates: start: 20181114, end: 20190423

REACTIONS (1)
  - Alanine aminotransferase increased [None]

NARRATIVE: CASE EVENT DATE: 20190423
